FAERS Safety Report 20211672 (Version 4)
Quarter: 2022Q1

REPORT INFORMATION
  Report Type: Report from Study
  Country: US (occurrence: US)
  Receive Date: 20211221
  Receipt Date: 20220118
  Transmission Date: 20220423
  Serious: Yes (Other)
  Sender: FDA-Public Use
  Company Number: US-BEH-2021139521

PATIENT
  Age: 77 Year
  Sex: Male
  Weight: 84.354 kg

DRUGS (1)
  1. HIZENTRA [Suspect]
     Active Substance: HUMAN IMMUNOGLOBULIN G
     Indication: Chronic inflammatory demyelinating polyradiculoneuropathy
     Dosage: 20 GRAM, QW
     Route: 058
     Dates: start: 20211124, end: 20211229

REACTIONS (7)
  - Drug ineffective [Unknown]
  - Infusion site extravasation [Recovered/Resolved]
  - Infusion site pruritus [Recovered/Resolved]
  - Infusion site irritation [Recovered/Resolved]
  - Rash [Recovered/Resolved]
  - Unevaluable event [Unknown]
  - Pruritus [Not Recovered/Not Resolved]

NARRATIVE: CASE EVENT DATE: 20211124
